FAERS Safety Report 4457822-0 (Version None)
Quarter: 2004Q3

REPORT INFORMATION
  Report Type: 
  Country: None (occurrence: None)
  Receive Date: 20040924
  Receipt Date: 20030605
  Transmission Date: 20050211
  Serious: Yes (Hospitalization, Disabling)
  Sender: FDA-Public Use
  Company Number: US-MERCK-0306USA00640

PATIENT
  Age: 62 Year
  Sex: Female

DRUGS (11)
  1. XANAX [Concomitant]
     Route: 065
  2. ASPIRIN [Concomitant]
     Route: 065
  3. PREMARIN [Concomitant]
     Route: 065
  4. LASIX [Concomitant]
     Route: 065
  5. MAXZIDE [Concomitant]
     Route: 065
  6. PREVACID [Concomitant]
     Route: 065
  7. CLARITIN-D [Concomitant]
     Route: 065
  8. NITROPATCH [Concomitant]
     Route: 065
  9. VIOXX [Suspect]
     Indication: ARTHRITIS
     Route: 048
  10. VIOXX [Suspect]
     Route: 048
  11. DETROL [Concomitant]
     Route: 065

REACTIONS (18)
  - ABDOMINAL PAIN UPPER [None]
  - ADRENAL ADENOMA [None]
  - ADRENAL CYST [None]
  - ADVERSE EVENT [None]
  - ARTERIAL OCCLUSIVE DISEASE [None]
  - BACK PAIN [None]
  - CARDIOMEGALY [None]
  - CHEST PAIN [None]
  - CHOLECYSTITIS [None]
  - CHOLELITHIASIS [None]
  - DILATATION ATRIAL [None]
  - HEPATIC STEATOSIS [None]
  - INCONTINENCE [None]
  - INJURY [None]
  - MITRAL VALVE INCOMPETENCE [None]
  - THYROID DISORDER [None]
  - UMBILICAL HERNIA [None]
  - VENTRICULAR HYPERTROPHY [None]
